FAERS Safety Report 9882169 (Version 1)
Quarter: 2014Q1

REPORT INFORMATION
  Report Type: Spontaneous
  Country: DE (occurrence: DE)
  Receive Date: 20140207
  Receipt Date: 20140207
  Transmission Date: 20141002
  Serious: Yes (Death, Hospitalization)
  Sender: FDA-Public Use
  Company Number: DE-WATSON-2014-01638

PATIENT
  Age: 77 Year
  Sex: Female
  Weight: 54 kg

DRUGS (5)
  1. LEVETIRACETAM (UNKNOWN) [Suspect]
     Indication: GRAND MAL CONVULSION
     Dosage: 750 MG, BID
     Route: 048
     Dates: start: 201308, end: 20131120
  2. DONEPEZIL (UNKNOWN) [Suspect]
     Indication: DEMENTIA
     Dosage: 5 MG, DAILY
     Route: 048
     Dates: start: 201308, end: 20131120
  3. ASS [Concomitant]
     Indication: CORONARY ARTERY DISEASE
     Dosage: 100 MG, UNK
     Route: 048
     Dates: end: 20131206
  4. IRBESARTAN [Concomitant]
     Indication: HYPERTENSION
     Dosage: 2 X 150 MG
     Route: 048
     Dates: end: 20131120
  5. MOXONIDIN [Concomitant]
     Indication: HYPERTENSION
     Dosage: 0.2 MG, UNK
     Route: 048
     Dates: end: 201312

REACTIONS (2)
  - Hepatorenal syndrome [Fatal]
  - Acute hepatic failure [Fatal]
